FAERS Safety Report 7141290-4 (Version None)
Quarter: 2010Q4

REPORT INFORMATION
  Report Type: 
  Country: None (occurrence: None)
  Receive Date: 20101122
  Receipt Date: 20100708
  Transmission Date: 20110411
  Serious: Yes (Hospitalization)
  Sender: FDA-Public Use
  Company Number: 056-50794-10052542

PATIENT
  Age: 65 Year
  Sex: Male
  Weight: 75 kg

DRUGS (7)
  1. VIDAZA [Suspect]
     Indication: ACUTE MYELOID LEUKAEMIA
     Dosage: 75 MG/M2, SC
     Route: 058
     Dates: start: 20100506, end: 20100526
  2. VIDAZA [Suspect]
     Indication: MYELODYSPLASTIC SYNDROME
     Dosage: 75 MG/M2, SC
     Route: 058
     Dates: start: 20100506, end: 20100526
  3. REVLIMID [Suspect]
     Indication: ACUTE MYELOID LEUKAEMIA
     Dosage: 5 MG, PO
     Route: 048
     Dates: start: 20100506, end: 20100526
  4. REVLIMID [Suspect]
     Indication: MYELODYSPLASTIC SYNDROME
     Dosage: 5 MG, PO
     Route: 048
     Dates: start: 20100506, end: 20100526
  5. GRANOCYTE 34 (LENOGRASTIM) [Concomitant]
  6. AUGMENTIN '125' [Concomitant]
  7. CIPROFLOXACIN [Concomitant]

REACTIONS (6)
  - ASPERGILLUS TEST POSITIVE [None]
  - BLOOD CHLORIDE ABNORMAL [None]
  - COMPUTERISED TOMOGRAM ABNORMAL [None]
  - FEBRILE NEUTROPENIA [None]
  - LUNG DISORDER [None]
  - SUBDURAL HAEMATOMA [None]
